FAERS Safety Report 4379412-0 (Version None)
Quarter: 2004Q2

REPORT INFORMATION
  Report Type: 
  Country: None (occurrence: None)
  Receive Date: 20040617
  Receipt Date: 20040427
  Transmission Date: 20050107
  Serious: Yes (Other)
  Sender: FDA-Public Use
  Company Number: PHHO2004IT06213

PATIENT
  Age: 46 Year
  Sex: Female

DRUGS (13)
  1. NEORAL [Suspect]
     Indication: BONE MARROW TRANSPLANT
     Dosage: NOT REPORTED
     Route: 065
     Dates: start: 20040330
  2. AMBISOME [Suspect]
     Dosage: NOT REPORTED
     Route: 065
     Dates: start: 20040401
  3. FOSCARNET [Suspect]
     Dosage: NOT REPORTED
     Route: 065
     Dates: start: 20040329
  4. DIURETICS [Suspect]
  5. CHEMOTHERAPEUTICS,OTHER [Suspect]
  6. MEROPENEM [Concomitant]
  7. ALIZAPRIDE [Concomitant]
  8. VANCOMYCIN [Concomitant]
     Dates: start: 20040325, end: 20040525
  9. NIFEDIPINE [Concomitant]
     Dates: start: 20040401, end: 20040415
  10. ALLOPURINOL [Concomitant]
  11. FUROSEMIDE [Suspect]
     Dates: start: 20040329
  12. RANITIDINE [Concomitant]
     Dates: end: 20040402
  13. AMIKACIN [Concomitant]
     Dates: end: 20040402

REACTIONS (1)
  - HYPOKALAEMIA [None]
